FAERS Safety Report 6880898-8 (Version None)
Quarter: 2010Q3

REPORT INFORMATION
  Report Type: 
  Country: None (occurrence: None)
  Receive Date: 20100728
  Receipt Date: 20100721
  Transmission Date: 20110219
  Serious: Yes (Hospitalization, Other)
  Sender: FDA-Public Use
  Company Number: AR-ABBOTT-10P-007-0655064-00

PATIENT
  Sex: Female
  Weight: 56 kg

DRUGS (2)
  1. LUPRON DEPOT [Suspect]
     Indication: BREAST CANCER
     Route: 030
     Dates: start: 20090301
  2. TAMOXIFEN [Concomitant]
     Indication: BREAST CANCER
     Dosage: DAILY DOSE: 20MG
     Route: 048
     Dates: start: 20090101

REACTIONS (3)
  - DYSPHONIA [None]
  - PLEURAL EFFUSION [None]
  - POLLAKIURIA [None]
